FAERS Safety Report 25963545 (Version 2)
Quarter: 2025Q4

REPORT INFORMATION
  Report Type: Spontaneous
  Country: JP (occurrence: JP)
  Receive Date: 20251027
  Receipt Date: 20251106
  Transmission Date: 20260119
  Serious: Yes (Death, Other)
  Sender: JAZZ
  Company Number: JP-JAZZ PHARMACEUTICALS-2025-JP-017387

PATIENT

DRUGS (2)
  1. DEFITELIO [Suspect]
     Active Substance: DEFIBROTIDE SODIUM
     Indication: Venoocclusive liver disease
     Dosage: UNK
     Dates: start: 20250613, end: 20250708
  2. DEFITELIO [Suspect]
     Active Substance: DEFIBROTIDE SODIUM
     Dosage: UNK
     Dates: start: 20250926, end: 20251024

REACTIONS (5)
  - Death [Fatal]
  - Venoocclusive liver disease [Unknown]
  - Disseminated intravascular coagulation [Not Recovered/Not Resolved]
  - Subdural haematoma [Not Recovered/Not Resolved]
  - Blood bilirubin decreased [Unknown]

NARRATIVE: CASE EVENT DATE: 20250101
